FAERS Safety Report 16735435 (Version 2)
Quarter: 2019Q4

REPORT INFORMATION
  Report Type: Report from Study
  Country: US (occurrence: US)
  Receive Date: 20190823
  Receipt Date: 20191110
  Transmission Date: 20200122
  Serious: Yes (Other)
  Sender: FDA-Public Use
  Company Number: PHHY2019US193813

PATIENT
  Age: 59 Year
  Sex: Female

DRUGS (1)
  1. GILENYA [Suspect]
     Active Substance: FINGOLIMOD HYDROCHLORIDE
     Indication: MULTIPLE SCLEROSIS
     Dosage: UNK, QD
     Route: 048

REACTIONS (5)
  - Lymphocyte count decreased [Unknown]
  - Skin hyperpigmentation [Unknown]
  - Seborrhoeic keratosis [Recovered/Resolved]
  - Benign neoplasm of skin [Unknown]
  - Acrochordon [Unknown]

NARRATIVE: CASE EVENT DATE: 20181001
